FAERS Safety Report 21987436 (Version 2)
Quarter: 2024Q1

REPORT INFORMATION
  Report Type: Spontaneous
  Country: GB (occurrence: GB)
  Receive Date: 20230214
  Receipt Date: 20240208
  Transmission Date: 20240410
  Serious: No
  Sender: FDA-Public Use
  Company Number: None

PATIENT
  Age: 70 Year
  Sex: Female
  Weight: 68 kg

DRUGS (2)
  1. CEPHALEXIN [Suspect]
     Active Substance: CEPHALEXIN
     Indication: Product used for unknown indication
     Dosage: 100 MILLIGRAM, QD, CAPSULE
     Route: 065
     Dates: start: 20220711
  2. VAGIFEM [Concomitant]
     Active Substance: ESTRADIOL
     Indication: Product used for unknown indication
     Dosage: 2 DOSAGE FORM, ONCE WEEKLY
     Route: 065
     Dates: start: 20220118

REACTIONS (4)
  - Palpitations [Recovering/Resolving]
  - Skin burning sensation [Recovered/Resolved]
  - Pain [Recovered/Resolved]
  - Tachyphrenia [Recovering/Resolving]

NARRATIVE: CASE EVENT DATE: 20220711
